FAERS Safety Report 8199142-7 (Version None)
Quarter: 2012Q1

REPORT INFORMATION
  Report Type: 
  Country: None (occurrence: None)
  Receive Date: 20120309
  Receipt Date: 20120306
  Transmission Date: 20120608
  Serious: Yes (Other)
  Sender: FDA-Public Use
  Company Number: DE-ABBOTT-12P-062-0912318-00

PATIENT
  Sex: Male
  Weight: 127 kg

DRUGS (9)
  1. ALLOPURINOL [Concomitant]
     Indication: BLOOD URIC ACID INCREASED
  2. FUMADERM [Concomitant]
     Indication: PSORIASIS
  3. HUMIRA [Suspect]
     Dosage: SECOND WEEK: ONCE
  4. METFORMIN HYDROCHLORIDE [Concomitant]
     Indication: PRODUCT USED FOR UNKNOWN INDICATION
  5. COLESTYRAMIN [Concomitant]
     Indication: BLOOD CHOLESTEROL INCREASED
  6. HUMIRA [Suspect]
     Indication: PSORIASIS
     Dosage: TWICE
     Route: 058
     Dates: start: 20120101, end: 20120101
  7. LEVOTHYROXINE SODIUM [Concomitant]
     Indication: THYROID DISORDER
  8. LISINOPRIL [Concomitant]
     Indication: PRODUCT USED FOR UNKNOWN INDICATION
  9. HUMIRA [Suspect]

REACTIONS (1)
  - LIVER FUNCTION TEST ABNORMAL [None]
